FAERS Safety Report 11025413 (Version 1)
Quarter: 2015Q2

REPORT INFORMATION
  Report Type: Spontaneous
  Country: DE (occurrence: None)
  Receive Date: 20150410
  Receipt Date: 20150410
  Transmission Date: 20150821
  Serious: Yes (Other)
  Sender: FDA-Public Use
  Company Number: DEP_02630_2015

PATIENT
  Sex: Female
  Weight: 60 kg

DRUGS (13)
  1. KREON 25000 [Concomitant]
     Active Substance: PANCRELIPASE
  2. MONOCLAIR [Concomitant]
  3. ESOMEP /00661201/ [Concomitant]
  4. DIGIMERCK [Concomitant]
     Active Substance: DIGITOXIN
  5. RAMIPRIL. [Concomitant]
     Active Substance: RAMIPRIL
  6. ASPIRIN. [Concomitant]
     Active Substance: ASPIRIN
  7. MAGNESIUM VERLA /00648601/ [Concomitant]
     Active Substance: MAGNESIUM
  8. GLIMEPIRID [Concomitant]
     Active Substance: GLIMEPIRIDE
  9. METAMIZOL /06276704/ [Concomitant]
  10. ACLASTA [Concomitant]
     Active Substance: ZOLEDRONIC ACID
  11. PALEXIA [Suspect]
     Active Substance: TAPENTADOL HYDROCHLORIDE
     Indication: PRODUCT USED FOR UNKNOWN INDICATION
     Route: 048
  12. PIRETANID [Concomitant]
  13. CALCIUM, COMBINATIONS WITH VITAMIN D AND/OR O [Concomitant]

REACTIONS (2)
  - Circulatory collapse [None]
  - Petit mal epilepsy [None]
